FAERS Safety Report 6000207-6 (Version None)
Quarter: 2008Q4

REPORT INFORMATION
  Report Type: 
  Country: None (occurrence: None)
  Receive Date: 20081215
  Receipt Date: 20081209
  Transmission Date: 20090506
  Serious: Yes (Life-Threatening)
  Sender: FDA-Public Use
  Company Number: FR-ASTRAZENECA-2008CG01817

PATIENT
  Age: 14532 Day
  Sex: Female

DRUGS (4)
  1. NAROPEINE [Suspect]
     Dates: start: 20081129, end: 20081129
  2. AMOXICILLIN PANPHARMA [Suspect]
     Indication: BETA HAEMOLYTIC STREPTOCOCCAL INFECTION
     Dosage: TWO AMPOULES OF AMOXICILLIN 1 GRAM DILUTED IN SERUM PHYSIOLOGICAL (SODIUM CHLORIDE)
     Route: 042
     Dates: start: 20081129, end: 20081129
  3. SYNTOCINON [Suspect]
     Route: 042
     Dates: start: 20081129, end: 20081129
  4. RINGER'S [Suspect]
     Route: 042
     Dates: start: 20081129, end: 20081129

REACTIONS (4)
  - CHEST DISCOMFORT [None]
  - CIRCULATORY COLLAPSE [None]
  - RASH [None]
  - SHOCK [None]
